FAERS Safety Report 9809582 (Version 3)
Quarter: 2014Q4

REPORT INFORMATION
  Report Type: Spontaneous
  Country: US (occurrence: US)
  Receive Date: 20140110
  Receipt Date: 20141229
  Transmission Date: 20150529
  Serious: Yes (Other)
  Sender: FDA-Public Use
  Company Number: US-SANOFI-AVENTIS-2012SA033135

PATIENT
  Sex: Male

DRUGS (3)
  1. PLAVIX [Suspect]
     Active Substance: CLOPIDOGREL BISULFATE
     Indication: CORONARY ARTERY BYPASS
     Route: 065
     Dates: start: 20080702, end: 20090514
  2. PLAVIX [Suspect]
     Active Substance: CLOPIDOGREL BISULFATE
     Indication: ACUTE CORONARY SYNDROME
     Route: 065
     Dates: start: 20080702, end: 20090514
  3. ASPIRIN. [Suspect]
     Active Substance: ASPIRIN
     Route: 065
     Dates: start: 20030401

REACTIONS (4)
  - Cerebral haemorrhage [Unknown]
  - Gastrointestinal haemorrhage [Unknown]
  - Ulcer haemorrhage [Unknown]
  - Dyspnoea [Unknown]

NARRATIVE: CASE EVENT DATE: 20090515
